FAERS Safety Report 6653976-6 (Version None)
Quarter: 2010Q1

REPORT INFORMATION
  Report Type: 
  Country: None (occurrence: None)
  Receive Date: 20100326
  Receipt Date: 20100111
  Transmission Date: 20100710
  Serious: Yes (Hospitalization)
  Sender: FDA-Public Use
  Company Number: GB-TEVA-228531ISR

PATIENT
  Sex: Male

DRUGS (29)
  1. PREDNISOLONE [Suspect]
     Indication: PROSTATE CANCER
     Route: 048
     Dates: start: 20090107
  2. ABIRATERONE ACETATE OR PLACEBO [Suspect]
     Indication: PROSTATE CANCER
     Route: 048
     Dates: start: 20090107, end: 20090811
  3. ABIRATERONE ACETATE OR PLACEBO [Suspect]
     Route: 048
     Dates: start: 20090817, end: 20090817
  4. ABIRATERONE ACETATE OR PLACEBO [Suspect]
     Route: 048
     Dates: start: 20090825, end: 20090915
  5. ABIRATERONE ACETATE OR PLACEBO [Suspect]
     Route: 048
     Dates: start: 20090917
  6. NIFEDIPINE [Concomitant]
     Indication: HYPERTENSION
     Route: 048
     Dates: start: 19981201
  7. OMEPRAZOLE [Concomitant]
     Indication: PROPHYLAXIS
     Route: 048
     Dates: start: 20071001
  8. AMITRIPTYLINE [Concomitant]
     Indication: CANCER PAIN
     Route: 048
     Dates: start: 20081001
  9. PARACETAMOL [Concomitant]
     Indication: CANCER PAIN
     Route: 048
     Dates: start: 20080201
  10. PARACETAMOL [Concomitant]
  11. LEKOVIT CA [Concomitant]
     Indication: MINERAL SUPPLEMENTATION
     Route: 048
     Dates: start: 20080101
  12. LEKOVIT CA [Concomitant]
     Indication: CANCER PAIN
  13. CYCLIZINE [Concomitant]
     Indication: PROPHYLAXIS
     Route: 048
     Dates: start: 20090303
  14. CYCLIZINE [Concomitant]
     Indication: CANCER PAIN
  15. GOSERELIN [Concomitant]
     Indication: HORMONE THERAPY
     Route: 058
     Dates: start: 20090107
  16. METOCLOPRAMIDE [Concomitant]
     Indication: PROPHYLAXIS OF NAUSEA AND VOMITING
     Route: 048
     Dates: start: 20081229
  17. MOVICOL [Concomitant]
     Indication: CONSTIPATION PROPHYLAXIS
     Route: 048
     Dates: start: 20081229
  18. LISINOPRIL [Concomitant]
     Indication: HYPERTENSION
     Route: 048
     Dates: start: 20090721, end: 20090904
  19. LISINOPRIL [Concomitant]
     Route: 048
     Dates: start: 20090904
  20. FENTANYL [Concomitant]
     Indication: CANCER PAIN
     Route: 062
     Dates: start: 20090623
  21. ONDANSETRON [Concomitant]
     Indication: NAUSEA
     Route: 048
     Dates: start: 20090811
  22. ONDANSETRON [Concomitant]
     Indication: VOMITING
  23. LEVOMEPROMAZINE [Concomitant]
     Indication: NAUSEA
     Route: 048
     Dates: start: 20090830
  24. LEVOMEPROMAZINE [Concomitant]
     Indication: VOMITING
  25. WARFARIN SODIUM [Concomitant]
     Route: 048
     Dates: start: 20090826
  26. LEVOMEPROMAZINE [Concomitant]
     Route: 048
     Dates: start: 20090830, end: 20090903
  27. LEVOMEPROMAZINE [Concomitant]
     Route: 058
     Dates: start: 20090904, end: 20090907
  28. DICLOFENAC [Concomitant]
     Indication: CANCER PAIN
     Route: 048
     Dates: start: 20090904
  29. TRAMADOL HCL [Concomitant]
     Indication: CANCER PAIN
     Route: 048
     Dates: start: 20080201

REACTIONS (1)
  - OSTEOMYELITIS [None]
